FAERS Safety Report 13204244 (Version 4)
Quarter: 2017Q2

REPORT INFORMATION
  Report Type: Spontaneous
  Country: US (occurrence: US)
  Receive Date: 20170209
  Receipt Date: 20170508
  Transmission Date: 20170830
  Serious: Yes (Hospitalization, Other)
  Sender: FDA-Public Use
  Company Number: US-NOVOPROD-510535

PATIENT
  Age: 30 Year
  Sex: Female
  Weight: 86.7 kg

DRUGS (3)
  1. PRENATAL VITAMINS                  /07499601/ [Concomitant]
     Active Substance: VITAMINS
     Indication: PREGNANCY
     Dosage: 1 TAB, QD
     Route: 048
     Dates: start: 20161006
  2. FOLIC ACID. [Concomitant]
     Active Substance: FOLIC ACID
     Indication: PREGNANCY
     Dosage: 400 ?G, QD
     Route: 048
     Dates: start: 20161006
  3. NOVOLOG [Suspect]
     Active Substance: INSULIN ASPART
     Indication: TYPE 1 DIABETES MELLITUS
     Dosage: 85 U, UNK, FOR MORE THAN 2 YEARS
     Route: 058

REACTIONS (9)
  - Exposure during pregnancy [Recovered/Resolved]
  - Overdose [Unknown]
  - Pre-eclampsia [Recovered/Resolved]
  - Blood glucose decreased [Unknown]
  - Oligohydramnios [Recovered/Resolved]
  - HELLP syndrome [Recovered/Resolved]
  - Premature delivery [Recovered/Resolved]
  - Diabetic retinopathy [Unknown]
  - Blood glucose increased [Unknown]

NARRATIVE: CASE EVENT DATE: 2016
